FAERS Safety Report 15100606 (Version 1)
Quarter: 2018Q3

REPORT INFORMATION
  Report Type: Spontaneous
  Country: CA (occurrence: CA)
  Receive Date: 20180703
  Receipt Date: 20180703
  Transmission Date: 20181010
  Serious: Yes (Other)
  Sender: FDA-Public Use
  Company Number: CA-BIOVITRUM-2018CA0751

PATIENT
  Sex: Female

DRUGS (15)
  1. SIMPONI [Suspect]
     Active Substance: GOLIMUMAB
     Route: 058
  2. DESOXIMETASONE. [Concomitant]
     Active Substance: DESOXIMETASONE
  3. REMICADE [Suspect]
     Active Substance: INFLIXIMAB
  4. KINERET [Suspect]
     Active Substance: ANAKINRA
  5. HYDROXYCHLOROQUINE [Suspect]
     Active Substance: HYDROXYCHLOROQUINE
  6. ORENCIA [Suspect]
     Active Substance: ABATACEPT
  7. TOCILIZUMAB. [Suspect]
     Active Substance: TOCILIZUMAB
  8. HUMIRA [Suspect]
     Active Substance: ADALIMUMAB
     Route: 058
  9. PLAQUENIL [Suspect]
     Active Substance: HYDROXYCHLOROQUINE SULFATE
  10. SULFASALAZINE. [Suspect]
     Active Substance: SULFASALAZINE
     Route: 048
  11. METHOTREXATE. [Concomitant]
     Active Substance: METHOTREXATE
     Indication: RHEUMATOID ARTHRITIS
  12. INFLIXIMAB [Suspect]
     Active Substance: INFLIXIMAB
  13. PREDNISONE. [Suspect]
     Active Substance: PREDNISONE
  14. ENBREL [Suspect]
     Active Substance: ETANERCEPT
     Indication: RHEUMATOID ARTHRITIS
     Route: 058
  15. PREDNISONE. [Concomitant]
     Active Substance: PREDNISONE

REACTIONS (6)
  - Joint swelling [Unknown]
  - Drug ineffective [Unknown]
  - Treatment failure [Unknown]
  - Pain [Unknown]
  - Arthralgia [Unknown]
  - Red blood cell sedimentation rate abnormal [Unknown]
